FAERS Safety Report 7336479-5 (Version None)
Quarter: 2011Q1

REPORT INFORMATION
  Report Type: 
  Country: None (occurrence: None)
  Receive Date: 20110307
  Receipt Date: 20110303
  Transmission Date: 20110831
  Serious: Yes (Other)
  Sender: FDA-Public Use
  Company Number: US-AMGEN-USASP2011012258

PATIENT
  Sex: Male

DRUGS (2)
  1. CHEMOTHERAPEUTICS NOS [Concomitant]
  2. NEUPOGEN [Suspect]
     Indication: CHEMOTHERAPY

REACTIONS (2)
  - GRANULOCYTE COUNT DECREASED [None]
  - PYREXIA [None]
